FAERS Safety Report 4526469-X (Version None)
Quarter: 2004Q4

REPORT INFORMATION
  Report Type: 
  Country: None (occurrence: None)
  Receive Date: 20041210
  Receipt Date: 20041129
  Transmission Date: 20050328
  Serious: Yes (Hospitalization, Other)
  Sender: FDA-Public Use
  Company Number: HQWYE712801DEC04

PATIENT
  Age: 42 Year
  Sex: Female

DRUGS (5)
  1. GEMTUZUMAB OZOGAMICIN (GEMTUZUMAB OZOGAMICIN, INJECTION) [Suspect]
     Indication: ACUTE MYELOID LEUKAEMIA
     Dosage: INTRAVENOUS
     Route: 042
     Dates: start: 20041111, end: 20041111
  2. SPORANOX [Concomitant]
  3. DIGOXIN [Concomitant]
  4. METOPROLOL TARTRATE [Concomitant]
  5. SPIRONOLACTONE [Concomitant]

REACTIONS (5)
  - CHILLS [None]
  - FATIGUE [None]
  - HYPOTENSION [None]
  - PYREXIA [None]
  - TACHYCARDIA [None]
